FAERS Safety Report 16388780 (Version 1)
Quarter: 2019Q3

REPORT INFORMATION
  Report Type: Spontaneous
  Country: US (occurrence: US)
  Receive Date: 20190602
  Receipt Date: 20190602
  Transmission Date: 20191004
  Serious: Yes (Hospitalization, Other)
  Sender: FDA-Public Use
  Company Number: None

PATIENT
  Age: 37 Year
  Sex: Female
  Weight: 72 kg

DRUGS (1)
  1. CIPRO [Suspect]
     Active Substance: CIPROFLOXACIN HYDROCHLORIDE
     Indication: URINARY TRACT INFECTION
     Route: 048
     Dates: start: 20190502, end: 20190509

REACTIONS (11)
  - Nervous system disorder [None]
  - Hypoaesthesia [None]
  - Dizziness [None]
  - Muscle twitching [None]
  - Ear discomfort [None]
  - Tooth disorder [None]
  - Spinal pain [None]
  - Dyskinesia [None]
  - Discomfort [None]
  - Head discomfort [None]
  - Gingival disorder [None]

NARRATIVE: CASE EVENT DATE: 20190507
